FAERS Safety Report 17759281 (Version 1)
Quarter: 2020Q2

REPORT INFORMATION
  Report Type: Spontaneous
  Country: JP (occurrence: JP)
  Receive Date: 20200508
  Receipt Date: 20200508
  Transmission Date: 20200714
  Serious: Yes (Death, Hospitalization)
  Sender: FDA-Public Use
  Company Number: JP-TEVA-2020-JP-1233925

PATIENT
  Age: 67 Year
  Sex: Female

DRUGS (1)
  1. WARFARIN [Suspect]
     Active Substance: WARFARIN
     Indication: PROSTHETIC CARDIAC VALVE THROMBOSIS
     Route: 065

REACTIONS (5)
  - Wound infection [Fatal]
  - Sepsis [Fatal]
  - Necrosis [Fatal]
  - Calciphylaxis [Fatal]
  - Impaired healing [Fatal]
